FAERS Safety Report 13367734 (Version 1)
Quarter: 2017Q1

REPORT INFORMATION
  Report Type: Spontaneous
  Country: US (occurrence: US)
  Receive Date: 20170323
  Receipt Date: 20170323
  Transmission Date: 20170429
  Serious: Yes (Other)
  Sender: FDA-Public Use
  Company Number: None

PATIENT
  Age: 73 Year
  Sex: Female
  Weight: 85.05 kg

DRUGS (3)
  1. ELIQUIS [Suspect]
     Active Substance: APIXABAN
     Indication: ATRIAL FIBRILLATION
     Dosage: ?          QUANTITY:1 TABLET(S);?
     Route: 048
     Dates: start: 20170221, end: 20170316
  2. LOW DOSE ASPIRIN [Concomitant]
     Active Substance: ASPIRIN
  3. BISOPROL [Concomitant]

REACTIONS (5)
  - Asthenia [None]
  - Irritability [None]
  - Wheezing [None]
  - Fear [None]
  - Rash [None]

NARRATIVE: CASE EVENT DATE: 20170308
